FAERS Safety Report 7377841 (Version 6)
Quarter: 2013Q1

REPORT INFORMATION
  Report Type: Spontaneous
  Country: US (occurrence: US)
  Receive Date: 20100505
  Receipt Date: 20130125
  Transmission Date: 20140127
  Serious: Yes (Hospitalization, Other)
  Sender: FDA-Public Use
  Company Number: US-ELI_LILLY_AND_COMPANY-US201005000640

PATIENT
  Age: 69 Year
  Sex: Male
  Weight: 113.38 kg

DRUGS (22)
  1. BYETTA [Suspect]
     Dosage: UNK, UNKNOWN
     Dates: start: 20060105, end: 20080513
  2. LANTUS [Concomitant]
     Indication: DIABETES MELLITUS
     Dosage: UNK
  3. JANUVIA [Concomitant]
     Indication: DIABETES MELLITUS
  4. ACTOS /USA/ [Concomitant]
     Dosage: 45 MG, QD
  5. SIMVASTATIN [Concomitant]
     Indication: PROPHYLAXIS
  6. AMPICILLIN [Concomitant]
     Indication: ANTIBIOTIC THERAPY
  7. GENTAMICIN [Concomitant]
     Indication: ANTIBIOTIC THERAPY
  8. AMOXICILLIN [Concomitant]
     Indication: ANTIBIOTIC THERAPY
  9. FELODIPINE [Concomitant]
     Indication: HYPERTENSION
  10. LISINOPRIL [Concomitant]
     Indication: HYPERTENSION
  11. METOPROLOL [Concomitant]
     Indication: HYPERTENSION
  12. ACETAMINOPHEN [Concomitant]
  13. NEURONTIN [Concomitant]
     Indication: RESTLESS LEGS SYNDROME
     Dosage: 200 MG, EACH EVENING
  14. PREVACID [Concomitant]
     Dosage: 30 MG, QD
  15. GABAPENTIN [Concomitant]
     Dosage: 200 MG, EACH EVENING
  16. ZOCOR [Concomitant]
     Dosage: 10 MG, QD
  17. LABETALOL [Concomitant]
     Dosage: 100 MG, BID
  18. NORVASC [Concomitant]
     Dosage: 10 MG, QD
  19. KLOR-CON [Concomitant]
     Dosage: 10 MEQ, QD
  20. DIOVAN [Concomitant]
     Dosage: 80 MG, QD
  21. ASPIRIN [Concomitant]
     Dosage: 81 MG, QD
  22. HYDROCHLOORTHIAZIDE [Concomitant]
     Dosage: 25 MG, QD

REACTIONS (6)
  - Bladder transitional cell carcinoma [Recovering/Resolving]
  - Prostate cancer [Recovering/Resolving]
  - Pancreatitis [Unknown]
  - Renal failure acute [Not Recovered/Not Resolved]
  - Renal impairment [Not Recovered/Not Resolved]
  - Off label use [Recovered/Resolved]
